FAERS Safety Report 14062039 (Version 1)
Quarter: 2017Q4

REPORT INFORMATION
  Report Type: Spontaneous
  Country: US (occurrence: US)
  Receive Date: 20171009
  Receipt Date: 20171009
  Transmission Date: 20180321
  Serious: No
  Sender: FDA-Public Use
  Company Number: US-FRESENIUS MEDICAL CARE RENAL THERAPIES GROUP-FMC-1709-001146

PATIENT
  Age: 66 Year
  Sex: Male

DRUGS (5)
  1. NIACIN. [Concomitant]
     Active Substance: NIACIN
  2. CALCITRIOL. [Concomitant]
     Active Substance: CALCITRIOL
  3. GENTAMICIN. [Concomitant]
     Active Substance: GENTAMICIN
  4. RIXIA [Concomitant]
  5. DELFLEX WITH DEXTROSE 2.5% LOW MAGNESIUM LOW CALCIUM [Suspect]
     Active Substance: CALCIUM CHLORIDE\DEXTROSE\MAGNESIUM CHLORIDE\SODIUM CHLORIDE\SODIUM LACTATE
     Indication: END STAGE RENAL DISEASE
     Route: 033
     Dates: start: 20160613

REACTIONS (1)
  - Abdominal discomfort [Recovered/Resolved]

NARRATIVE: CASE EVENT DATE: 20170729
